FAERS Safety Report 13631143 (Version 1)
Quarter: 2017Q2

REPORT INFORMATION
  Report Type: Spontaneous
  Country: AU (occurrence: AU)
  Receive Date: 20170608
  Receipt Date: 20170608
  Transmission Date: 20170830
  Serious: Yes (Hospitalization, Other)
  Sender: FDA-Public Use
  Company Number: PHHY2017AU081441

PATIENT
  Age: 25 Year
  Sex: Female

DRUGS (2)
  1. FAMCICLOVIR. [Suspect]
     Active Substance: FAMCICLOVIR
     Dosage: 500 MG, BID
     Route: 048
  2. FAMCICLOVIR. [Suspect]
     Active Substance: FAMCICLOVIR
     Indication: GENITAL HERPES SIMPLEX
     Dosage: 1500 MG, UNK
     Route: 048

REACTIONS (3)
  - Genital herpes simplex [Unknown]
  - Herpes simplex encephalitis [Recovered/Resolved]
  - Disease recurrence [Unknown]
